FAERS Safety Report 7767274-0 (Version None)
Quarter: 2011Q3

REPORT INFORMATION
  Report Type: 
  Country: None (occurrence: None)
  Receive Date: 20110922
  Receipt Date: 20110121
  Transmission Date: 20111222
  Serious: No
  Sender: FDA-Public Use
  Company Number: US-ASTRAZENECA-2011SE04050

PATIENT
  Age: 30 Year
  Sex: Male
  Weight: 77.1 kg

DRUGS (8)
  1. SEROQUEL [Suspect]
     Indication: POST-TRAUMATIC STRESS DISORDER
     Route: 048
     Dates: start: 20100101, end: 20110101
  2. SEROQUEL [Suspect]
     Route: 048
     Dates: start: 20100101, end: 20110101
  3. SEROQUEL [Suspect]
     Indication: SLEEP DISORDER
     Route: 048
     Dates: start: 20100101, end: 20110101
  4. PERCOCET [Concomitant]
     Indication: BACK PAIN
  5. PERCOCET [Concomitant]
     Indication: ARTHRALGIA
  6. SEROQUEL [Suspect]
     Route: 048
     Dates: start: 20100101, end: 20110101
  7. XANAX [Concomitant]
  8. KLONOPIN [Concomitant]
     Dates: start: 20101101

REACTIONS (9)
  - SOCIAL AVOIDANT BEHAVIOUR [None]
  - PARANOIA [None]
  - DRUG INEFFECTIVE [None]
  - HOSTILITY [None]
  - IRRITABILITY [None]
  - ANGER [None]
  - AGGRESSION [None]
  - INSOMNIA [None]
  - DRUG DOSE OMISSION [None]
